FAERS Safety Report 13451448 (Version 2)
Quarter: 2017Q2

REPORT INFORMATION
  Report Type: Report from Study
  Country: US (occurrence: US)
  Receive Date: 20170418
  Receipt Date: 20170615
  Transmission Date: 20170830
  Serious: Yes (Other)
  Sender: FDA-Public Use
  Company Number: US-AMGEN-USASL2017035582

PATIENT
  Age: 74 Year
  Sex: Female
  Weight: 66.21 kg

DRUGS (2)
  1. REPATHA [Suspect]
     Active Substance: EVOLOCUMAB
     Indication: HYPERCHOLESTEROLAEMIA
  2. REPATHA [Suspect]
     Active Substance: EVOLOCUMAB
     Indication: HYPERLIPIDAEMIA
     Dosage: 140 MG, Q2WK
     Route: 058
     Dates: start: 20160205

REACTIONS (17)
  - Abdominal pain [Unknown]
  - Myalgia [Unknown]
  - Constipation [Unknown]
  - Pain [Unknown]
  - Tinnitus [Unknown]
  - Contusion [Unknown]
  - Poor quality sleep [Unknown]
  - Mental impairment [Unknown]
  - Rhinorrhoea [Unknown]
  - Oropharyngeal pain [Unknown]
  - Fatigue [Unknown]
  - Peripheral swelling [Unknown]
  - Dizziness [Unknown]
  - Injection site haemorrhage [Unknown]
  - Musculoskeletal stiffness [Unknown]
  - Decreased appetite [Unknown]
  - Influenza like illness [Unknown]
